FAERS Safety Report 10022940 (Version 1)
Quarter: 2014Q1

REPORT INFORMATION
  Report Type: Spontaneous
  Country: US (occurrence: US)
  Receive Date: 20140319
  Receipt Date: 20140319
  Transmission Date: 20141002
  Serious: No
  Sender: FDA-Public Use
  Company Number: US-SA-2014SA019382

PATIENT
  Sex: Female

DRUGS (1)
  1. NASACORT ALLERGY [Suspect]
     Indication: MULTIPLE ALLERGIES
     Dosage: FREQUENCY 1 SPRAY EACH NOSTRIL DAILY
     Route: 045
     Dates: start: 20140212, end: 20140213

REACTIONS (1)
  - Drug ineffective [Unknown]
